FAERS Safety Report 24774504 (Version 1)
Quarter: 2024Q4

REPORT INFORMATION
  Report Type: Spontaneous
  Country: US (occurrence: US)
  Receive Date: 20241225
  Receipt Date: 20241225
  Transmission Date: 20250115
  Serious: No
  Sender: ACCORD
  Company Number: US-Accord-427194

PATIENT

DRUGS (1)
  1. BUPROPION HYDROCHLORIDE [Suspect]
     Active Substance: BUPROPION HYDROCHLORIDE
     Indication: Product used for unknown indication
     Dosage: STRENGTH: 300MG; EXTENDED RELEASE

REACTIONS (4)
  - Product odour abnormal [Unknown]
  - Product quality issue [Unknown]
  - Product formulation issue [Unknown]
  - Product substitution issue [Unknown]
